FAERS Safety Report 7722639-8 (Version None)
Quarter: 2011Q3

REPORT INFORMATION
  Report Type: 
  Country: None (occurrence: None)
  Receive Date: 20110831
  Receipt Date: 20110830
  Transmission Date: 20111222
  Serious: Yes (Life-Threatening)
  Sender: FDA-Public Use
  Company Number: US-MERCK-1108USA01584

PATIENT
  Age: 27 Year
  Sex: Female

DRUGS (1)
  1. IVEMEND [Suspect]
     Indication: PROPHYLAXIS OF NAUSEA AND VOMITING
     Route: 041

REACTIONS (3)
  - DRUG INTOLERANCE [None]
  - CHEST DISCOMFORT [None]
  - FEELING ABNORMAL [None]
